FAERS Safety Report 11865753 (Version 1)
Quarter: 2015Q4

REPORT INFORMATION
  Report Type: Spontaneous
  Country: US (occurrence: US)
  Receive Date: 20151223
  Receipt Date: 20151223
  Transmission Date: 20160305
  Serious: Yes (Death, Hospitalization, Other)
  Sender: FDA-Public Use
  Company Number: US-ELI_LILLY_AND_COMPANY-US201512007398

PATIENT
  Age: 68 Year
  Sex: Male

DRUGS (1)
  1. GEMCITABINE HYDROCHLORIDE. [Suspect]
     Active Substance: GEMCITABINE HYDROCHLORIDE
     Indication: ADENOCARCINOMA PANCREAS
     Dosage: 500 MG/M2, OTHER

REACTIONS (7)
  - Anaemia [Unknown]
  - Dyspnoea exertional [Unknown]
  - Adenocarcinoma pancreas [Fatal]
  - Peripheral swelling [Unknown]
  - Tumour lysis syndrome [Recovered/Resolved]
  - Hypophagia [Not Recovered/Not Resolved]
  - Asthenia [Unknown]
